FAERS Safety Report 4331044-6 (Version None)
Quarter: 2004Q2

REPORT INFORMATION
  Report Type: 
  Country: None (occurrence: None)
  Receive Date: 20040405
  Receipt Date: 20040330
  Transmission Date: 20050107
  Serious: Yes (Hospitalization)
  Sender: FDA-Public Use
  Company Number: 200411049EU

PATIENT
  Age: 67 Year
  Sex: Male

DRUGS (9)
  1. DOCETAXEL [Suspect]
     Indication: NON-SMALL CELL LUNG CANCER
     Route: 042
     Dates: start: 20040318, end: 20040318
  2. CARBOPLATIN [Suspect]
     Indication: NON-SMALL CELL LUNG CANCER
     Route: 042
     Dates: start: 20040318, end: 20040318
  3. UNKNOWN DRUG [Suspect]
     Indication: NON-SMALL CELL LUNG CANCER
     Route: 048
     Dates: start: 20040226, end: 20040309
  4. SELOKEEN ZOC [Concomitant]
  5. ACETAMINOPHEN [Concomitant]
  6. ACENOCOUMAROL [Concomitant]
  7. EPREX [Concomitant]
  8. PRIMPERAN INJ [Concomitant]
  9. ZOFRAN [Concomitant]

REACTIONS (4)
  - NAUSEA [None]
  - PYREXIA [None]
  - VOMITING [None]
  - WEIGHT DECREASED [None]
